FAERS Safety Report 7271808-2 (Version None)
Quarter: 2011Q1

REPORT INFORMATION
  Report Type: 
  Country: None (occurrence: None)
  Receive Date: 20110127
  Receipt Date: 20110114
  Transmission Date: 20110831
  Serious: Yes (Hospitalization, Other)
  Sender: FDA-Public Use
  Company Number: 025048

PATIENT
  Weight: 63.5 kg

DRUGS (6)
  1. SULFASALAZINE [Concomitant]
  2. CIMZIA [Suspect]
     Indication: SPONDYLITIS
     Dosage: (200 MG 1X/2 WEEKS SUBCUTANEOUS)
     Route: 058
     Dates: start: 20100325, end: 20100729
  3. MORPHINE [Concomitant]
  4. CARBOCAL [Concomitant]
  5. FOSAMAX [Concomitant]
  6. PREDNISONE [Concomitant]

REACTIONS (3)
  - OFF LABEL USE [None]
  - VIRAEMIA [None]
  - HAEMATOSPERMIA [None]
